FAERS Safety Report 23920044 (Version 1)
Quarter: 2024Q2

REPORT INFORMATION
  Report Type: Spontaneous
  Country: NL (occurrence: NL)
  Receive Date: 20240530
  Receipt Date: 20240530
  Transmission Date: 20240716
  Serious: Yes (Other)
  Sender: FDA-Public Use
  Company Number: None

PATIENT
  Age: 61 Year
  Sex: Male
  Weight: 75 kg

DRUGS (4)
  1. RESLIZUMAB [Suspect]
     Active Substance: RESLIZUMAB
     Indication: Asthma
     Dosage: 1X4WK, RESLIZUMAB INFOPL CONC / BRAND NAME NOT SPECIFIED
     Route: 065
     Dates: start: 20181210
  2. CETIRIZINE [Concomitant]
     Active Substance: CETIRIZINE HYDROCHLORIDE
     Indication: Product used for unknown indication
     Dosage: BRAND NAME NOT SPECIFIED
     Route: 065
  3. NASONEX [Concomitant]
     Active Substance: MOMETASONE FUROATE
     Indication: Product used for unknown indication
     Dosage: MOMETASON NOSE SPRAY 50UG/DO / NASONEX NOSE SPRAY 50MCG/DO 140DO
     Route: 065
  4. FOSTER [Concomitant]
     Active Substance: BECLOMETHASONE\FORMOTEROL
     Indication: Product used for unknown indication
     Dosage: INHALATION POWDER, 200/6 ?G/DOSE (MICROGRAMS PER DOSE), BECLOMETASON/FORMOTEROL INHALATION POWDER...
     Route: 065

REACTIONS (1)
  - Follicular lymphoma [Recovered/Resolved]
